FAERS Safety Report 6765330-7 (Version None)
Quarter: 2010Q2

REPORT INFORMATION
  Report Type: 
  Country: None (occurrence: None)
  Receive Date: 20100611
  Receipt Date: 20100528
  Transmission Date: 20101027
  Serious: Yes (Hospitalization)
  Sender: FDA-Public Use
  Company Number: NO-RANBAXY-2010RR-32663

PATIENT
  Sex: Male

DRUGS (1)
  1. RANITIDINE [Suspect]
     Indication: ABDOMINAL PAIN
     Route: 048
     Dates: start: 20080601, end: 20080601

REACTIONS (1)
  - CHOLESTASIS [None]
